FAERS Safety Report 17651443 (Version 1)
Quarter: 2020Q2

REPORT INFORMATION
  Report Type: Spontaneous
  Country: US (occurrence: US)
  Receive Date: 20200409
  Receipt Date: 20200409
  Transmission Date: 20200713
  Serious: Yes (Life-Threatening)
  Sender: FDA-Public Use
  Company Number: US-TORRENT-00010141

PATIENT
  Age: 71 Year
  Sex: Female

DRUGS (1)
  1. SILDENAFIL. [Suspect]
     Active Substance: SILDENAFIL
     Indication: PULMONARY ARTERIAL HYPERTENSION
     Dosage: UNKNOWN

REACTIONS (4)
  - Pulmonary veno-occlusive disease [Unknown]
  - Right ventricular dysfunction [Unknown]
  - Pulmonary oedema [Unknown]
  - Condition aggravated [Unknown]
